FAERS Safety Report 15021230 (Version 1)
Quarter: 2018Q2

REPORT INFORMATION
  Report Type: Spontaneous
  Country: US (occurrence: US)
  Receive Date: 20180618
  Receipt Date: 20180618
  Transmission Date: 20180711
  Serious: Yes (Hospitalization)
  Sender: FDA-Public Use
  Company Number: US-JNJFOC-20180617422

PATIENT
  Age: 53 Year
  Sex: Male

DRUGS (1)
  1. INVOKANA [Suspect]
     Active Substance: CANAGLIFLOZIN
     Indication: TYPE 2 DIABETES MELLITUS
     Route: 048
     Dates: start: 20140225

REACTIONS (4)
  - Toe amputation [Unknown]
  - Diabetic foot infection [Recovered/Resolved]
  - Diabetic gangrene [Recovered/Resolved]
  - Osteomyelitis acute [Recovered/Resolved]

NARRATIVE: CASE EVENT DATE: 2015
